FAERS Safety Report 23182212 (Version 4)
Quarter: 2024Q2

REPORT INFORMATION
  Report Type: Spontaneous
  Country: JP (occurrence: JP)
  Receive Date: 20231114
  Receipt Date: 20240410
  Transmission Date: 20240715
  Serious: No
  Sender: FDA-Public Use
  Company Number: JP-AMGEN-JPNSP2023198915

PATIENT
  Sex: Female

DRUGS (3)
  1. REPATHA [Suspect]
     Active Substance: EVOLOCUMAB
     Indication: Product used for unknown indication
     Dosage: 140 MILLIGRAM
     Route: 058
  2. REPATHA [Suspect]
     Active Substance: EVOLOCUMAB
     Dosage: 140 MILLIGRAM
     Route: 058
  3. REPATHA [Suspect]
     Active Substance: EVOLOCUMAB
     Dosage: 140 MILLIGRAM
     Route: 058

REACTIONS (3)
  - Wrong technique in product usage process [Unknown]
  - Device difficult to use [Unknown]
  - Drug dose omission by device [Unknown]
